FAERS Safety Report 24707913 (Version 1)
Quarter: 2024Q4

REPORT INFORMATION
  Report Type: Spontaneous
  Country: US (occurrence: US)
  Receive Date: 20241206
  Receipt Date: 20241206
  Transmission Date: 20250115
  Serious: Yes (Hospitalization, Other)
  Sender: ELI LILLY AND COMPANY
  Company Number: US-ELI_LILLY_AND_COMPANY-US202412002409

PATIENT
  Age: 84 Year
  Sex: Male

DRUGS (3)
  1. HUMALOG KWIKPEN [Suspect]
     Active Substance: INSULIN LISPRO
     Indication: Type 2 diabetes mellitus
     Dosage: 80 U, UNKNOWN
     Route: 058
     Dates: start: 2019
  2. HUMALOG KWIKPEN [Suspect]
     Active Substance: INSULIN LISPRO
     Dosage: 80 U, UNKNOWN
     Route: 058
  3. TOUJEO [Concomitant]
     Active Substance: INSULIN GLARGINE
     Indication: Type 2 diabetes mellitus
     Dosage: 22 U, DAILY
     Route: 065

REACTIONS (6)
  - Fall [Unknown]
  - Back disorder [Unknown]
  - Chronic kidney disease [Not Recovered/Not Resolved]
  - Dementia [Not Recovered/Not Resolved]
  - Bone disorder [Unknown]
  - Blood glucose increased [Recovered/Resolved]
